FAERS Safety Report 6332776-0 (Version None)
Quarter: 2009Q3

REPORT INFORMATION
  Report Type: 
  Country: None (occurrence: None)
  Receive Date: 20090828
  Receipt Date: 20090821
  Transmission Date: 20100115
  Serious: Yes (Death)
  Sender: FDA-Public Use
  Company Number: B0582342A

PATIENT
  Sex: Female
  Weight: 60 kg

DRUGS (4)
  1. TYVERB [Suspect]
     Indication: BREAST CANCER
     Dosage: 2500MG PER DAY
     Route: 048
     Dates: start: 20090527, end: 20090621
  2. KYTRIL [Concomitant]
  3. DEXAMETHASONE [Concomitant]
     Indication: METASTASES TO LIVER
     Route: 065
  4. UNKNOWN [Concomitant]
     Route: 065

REACTIONS (5)
  - BREAST CANCER [None]
  - METASTASES TO LIVER [None]
  - MUSCULAR WEAKNESS [None]
  - OEDEMA PERIPHERAL [None]
  - SKIN LESION [None]
